FAERS Safety Report 8416806-8 (Version None)
Quarter: 2012Q2

REPORT INFORMATION
  Report Type: 
  Country: None (occurrence: None)
  Receive Date: 20120606
  Receipt Date: 20120531
  Transmission Date: 20120825
  Serious: Yes (Hospitalization)
  Sender: FDA-Public Use
  Company Number: JP-MERCK-1203USA02869

PATIENT
  Age: 65 Year
  Sex: Female

DRUGS (16)
  1. KAYEXALATE [Concomitant]
     Route: 065
     Dates: start: 20110625
  2. DIOVAN [Concomitant]
     Route: 065
     Dates: start: 20051001
  3. DOXAZOSIN MESYLATE [Concomitant]
     Route: 065
     Dates: start: 20011101
  4. PRAVASTATIN SODIUM [Concomitant]
     Route: 065
     Dates: start: 20010901
  5. BASEN OD [Concomitant]
     Route: 065
     Dates: start: 20000201
  6. LANTUS [Concomitant]
     Route: 065
     Dates: start: 20111022
  7. NOVORAPID [Concomitant]
     Route: 065
     Dates: start: 20091128
  8. NORVASC [Concomitant]
     Route: 065
     Dates: start: 20030301
  9. GLYBURIDE [Concomitant]
     Route: 065
     Dates: start: 20000201
  10. LANTUS [Concomitant]
     Route: 065
     Dates: start: 20091226, end: 20111021
  11. FERRUM (FERROUS FUMARATE) [Concomitant]
     Route: 065
     Dates: start: 20110101
  12. FEBURIC [Concomitant]
     Route: 065
     Dates: start: 20120101
  13. JANUVIA [Suspect]
     Indication: TYPE 2 DIABETES MELLITUS
     Route: 048
     Dates: start: 20111022
  14. INDAPAMIDE [Concomitant]
     Route: 065
     Dates: start: 20040301
  15. KREMEZIN [Concomitant]
     Route: 065
     Dates: start: 20011001
  16. DIBETOS [Concomitant]
     Route: 065
     Dates: start: 20000301

REACTIONS (3)
  - HAEMORRHOIDS [None]
  - WEIGHT DECREASED [None]
  - COLITIS ISCHAEMIC [None]
